FAERS Safety Report 5042775-7 (Version None)
Quarter: 2006Q2

REPORT INFORMATION
  Report Type: 
  Country: None (occurrence: None)
  Receive Date: 20060621
  Receipt Date: 20060607
  Transmission Date: 20061013
  Serious: Yes (Hospitalization, Other)
  Sender: FDA-Public Use
  Company Number: 200610066BBE

PATIENT
  Age: 66 Year
  Sex: Female

DRUGS (14)
  1. GAMUNEX [Suspect]
     Indication: GUILLAIN-BARRE SYNDROME
     Dosage: 5 G, TOTAL DAILY, INTRAVENOUS; 20 G, TOTAL DAILY, INTRAVENOUS
     Route: 042
     Dates: start: 20060223, end: 20060226
  2. GAMUNEX [Suspect]
  3. ATIVAN [Concomitant]
  4. SIMVASTATIN [Concomitant]
  5. ACETAMINOPHEN W/ CODEINE [Concomitant]
  6. BENADRIL [Concomitant]
  7. HEPARIN [Concomitant]
  8. METOPROLOL TARTRATE [Concomitant]
  9. CLONIDINE [Concomitant]
  10. DOXAZOSIN [Concomitant]
  11. CLONAZEPAM [Concomitant]
  12. ENALAPRIL MALEATE [Concomitant]
  13. LABETALOL HCL [Concomitant]
  14. LAXATIVES [Concomitant]

REACTIONS (5)
  - ANXIETY [None]
  - AUTONOMIC NERVOUS SYSTEM IMBALANCE [None]
  - HAEMOLYTIC ANAEMIA [None]
  - HYPERTENSION [None]
  - SUPRAVENTRICULAR TACHYCARDIA [None]
